FAERS Safety Report 13567623 (Version 1)
Quarter: 2017Q2

REPORT INFORMATION
  Report Type: Spontaneous
  Country: US (occurrence: US)
  Receive Date: 20170522
  Receipt Date: 20170522
  Transmission Date: 20170830
  Serious: No
  Sender: FDA-Public Use
  Company Number: US-TEVA-731570ACC

PATIENT
  Age: 17 Year
  Sex: Female

DRUGS (1)
  1. JUNEL [Suspect]
     Active Substance: ETHINYL ESTRADIOL\NORETHINDRONE ACETATE
     Indication: MENSTRUATION IRREGULAR
     Dosage: 1 MG/0.02 MG
     Dates: start: 201610

REACTIONS (3)
  - Headache [Unknown]
  - Off label use [Unknown]
  - Reaction to drug excipients [Unknown]
